FAERS Safety Report 5678757-1 (Version None)
Quarter: 2008Q1

REPORT INFORMATION
  Report Type: 
  Country: None (occurrence: None)
  Receive Date: 20080321
  Receipt Date: 20080311
  Transmission Date: 20080703
  Serious: Yes (Hospitalization)
  Sender: FDA-Public Use
  Company Number: 2008BI000532

PATIENT
  Age: 53 Year
  Sex: Female

DRUGS (1)
  1. AVONEX [Suspect]
     Indication: MULTIPLE SCLEROSIS
     Dosage: 30 UG; QW; IM
     Route: 030
     Dates: start: 20010501

REACTIONS (6)
  - BILIARY TRACT DISORDER [None]
  - GASTROINTESTINAL MOTILITY DISORDER [None]
  - HYPERTROPHY [None]
  - INTESTINAL OBSTRUCTION [None]
  - PANCREATIC DISORDER [None]
  - PROCEDURAL COMPLICATION [None]
